FAERS Safety Report 24049876 (Version 1)
Quarter: 2024Q3

REPORT INFORMATION
  Report Type: Report from Study
  Country: CA (occurrence: CA)
  Receive Date: 20240704
  Receipt Date: 20240704
  Transmission Date: 20241017
  Serious: Yes (Other)
  Sender: BIOCON
  Company Number: CA-BIOCON BIOLOGICS LIMITED-BBL2024004784

PATIENT

DRUGS (1)
  1. HULIO [Suspect]
     Active Substance: ADALIMUMAB-FKJP
     Indication: Rheumatoid arthritis
     Dosage: 40 MILLIGRAM, Q2W (SINGLE-DOSE)
     Route: 058

REACTIONS (5)
  - Hip fracture [Unknown]
  - Malaise [Unknown]
  - Fall [Unknown]
  - Weight increased [Unknown]
  - Respiratory tract infection [Unknown]
